FAERS Safety Report 10662078 (Version 1)
Quarter: 2014Q4

REPORT INFORMATION
  Report Type: Spontaneous
  Country: FR (occurrence: FR)
  Receive Date: 20141218
  Receipt Date: 20141218
  Transmission Date: 20150529
  Serious: Yes (Hospitalization)
  Sender: FDA-Public Use
  Company Number: FR-SA-2014SA170380

PATIENT
  Age: 63 Year
  Sex: Female

DRUGS (4)
  1. ACITRETIN. [Suspect]
     Active Substance: ACITRETIN
     Route: 048
  2. STELARA [Suspect]
     Active Substance: USTEKINUMAB
     Dosage: DOSE : 90 MG IN 3 MONTHS?STRENGTH : 1 MG
     Route: 058
     Dates: start: 201403, end: 201409
  3. COAPROVEL [Suspect]
     Active Substance: HYDROCHLOROTHIAZIDE\IRBESARTAN
     Route: 048
     Dates: start: 2008
  4. PULMICORT TURBUHALER [Suspect]
     Active Substance: BUDESONIDE
     Route: 055
     Dates: start: 20120418

REACTIONS (1)
  - Malignant melanoma [Recovered/Resolved]

NARRATIVE: CASE EVENT DATE: 20141023
